FAERS Safety Report 9513716 (Version 1)
Quarter: 2013Q1

REPORT INFORMATION
  Report Type: Spontaneous
  Country: US (occurrence: None)
  Receive Date: 20130305
  Receipt Date: 20130305
  Transmission Date: 20140127
  Serious: Yes (Other)
  Sender: FDA-Public Use
  Company Number: 163-21880-12102590

PATIENT
  Age: 58 Year
  Sex: Female

DRUGS (5)
  1. REVLIMID [Suspect]
     Indication: PLASMA CELL MYELOMA
     Dosage: 10 MG, 21 IN 28 D, PO
     Route: 048
     Dates: start: 20120918
  2. LOPERAMIDE (LOPERAMIDE) (UNKNOWN) [Concomitant]
  3. ASPIRIN (ACETYLSALICYLIC ACID) (UNKNOWN)^ [Concomitant]
  4. LACTOSE (LACTOSE) (UNKNOWN) [Concomitant]
  5. MULTIVITAMIN (MULTIVITAMINS) (UNKNOWN) [Concomitant]

REACTIONS (8)
  - Neuropathy peripheral [None]
  - Rash [None]
  - Diarrhoea [None]
  - Nasopharyngitis [None]
  - Platelet count decreased [None]
  - Pruritus [None]
  - Fatigue [None]
  - Nausea [None]
